FAERS Safety Report 9538480 (Version 4)
Quarter: 2014Q2

REPORT INFORMATION
  Report Type: Spontaneous
  Country: US (occurrence: US)
  Receive Date: 20130920
  Receipt Date: 20140521
  Transmission Date: 20141212
  Serious: Yes (Other)
  Sender: FDA-Public Use
  Company Number: US-009507513-1309USA006889

PATIENT
  Sex: Male

DRUGS (3)
  1. PROSCAR [Suspect]
     Indication: PROSTATOMEGALY
     Dosage: 5 MG, UNK
     Route: 048
     Dates: start: 20050719, end: 20070616
  2. FINASTERIDE [Suspect]
     Indication: PROSTATOMEGALY
     Dosage: 5 MG, QD
     Route: 048
     Dates: start: 20070706, end: 20130820
  3. FINASTERIDE [Suspect]
     Indication: BENIGN PROSTATIC HYPERPLASIA

REACTIONS (20)
  - Deafness [Unknown]
  - Gastrooesophageal reflux disease [Unknown]
  - Erectile dysfunction [Not Recovered/Not Resolved]
  - Sexual dysfunction [Not Recovered/Not Resolved]
  - Urinary tract obstruction [Unknown]
  - Soft tissue neoplasm [Unknown]
  - Haematuria [Unknown]
  - Tooth abscess [Unknown]
  - Depression [Unknown]
  - Papilloma excision [Unknown]
  - Chronic sinusitis [Unknown]
  - Adjustment disorder with mixed anxiety and depressed mood [Unknown]
  - Rotator cuff syndrome [Unknown]
  - Haemorrhoids [Unknown]
  - Muscle strain [Unknown]
  - Skin disorder [Unknown]
  - Adverse event [Unknown]
  - Scar [Unknown]
  - Wrist deformity [Unknown]
  - Skin papilloma [Unknown]
